FAERS Safety Report 5336646-6 (Version None)
Quarter: 2007Q2

REPORT INFORMATION
  Report Type: 
  Country: None (occurrence: None)
  Receive Date: 20070529
  Receipt Date: 20070522
  Transmission Date: 20071010
  Serious: Yes (Disabling)
  Sender: FDA-Public Use
  Company Number: IN-AVENTIS-200714355GDDC

PATIENT
  Age: 47 Year
  Sex: Female
  Weight: 65 kg

DRUGS (10)
  1. ARAVA [Suspect]
     Indication: PSORIASIS
     Dates: start: 20070426, end: 20070507
  2. ARAVA [Suspect]
     Indication: RHEUMATOID ARTHRITIS
     Dates: start: 20070426, end: 20070507
  3. OROFER                             /00023501/ [Concomitant]
     Dosage: DOSE: 1 TABLET
  4. GLUFORMIN [Concomitant]
  5. MEDROL [Concomitant]
     Dosage: DOSE: 3 TABLETS
  6. METHOTREXATE [Concomitant]
     Dosage: DOSE: 0.8 ML
  7. OSTEOFOS [Concomitant]
  8. FOLIC ACID [Concomitant]
     Dosage: DOSE: 1 TAB
  9. CROCIN [Concomitant]
     Dosage: DOSE: 2 TABS
  10. SUPRACAL [Concomitant]
     Dosage: DOSE: 1 TAB

REACTIONS (6)
  - ASTHENIA [None]
  - BLOOD GLUCOSE INCREASED [None]
  - BLOOD PRESSURE INCREASED [None]
  - DIZZINESS [None]
  - FEELING ABNORMAL [None]
  - HEADACHE [None]
